FAERS Safety Report 4325681-2 (Version None)
Quarter: 2004Q1

REPORT INFORMATION
  Report Type: 
  Country: None (occurrence: None)
  Receive Date: 20040323
  Receipt Date: 20040316
  Transmission Date: 20041129
  Serious: Yes (Other)
  Sender: FDA-Public Use
  Company Number: 2004-DE-01096GD

PATIENT
  Age: 32 Year
  Sex: Female

DRUGS (2)
  1. METHOTREXATE [Suspect]
     Dosage: 25 MG/WEEK (NR), NR
  2. INFLIXIMAB (INFLIXIMAB) [Suspect]
     Indication: CROHN'S DISEASE
     Dosage: 5 MG/KG AS 2-H IV INFUSION INDUCTION (NR), IV
     Route: 042

REACTIONS (1)
  - PNEUMONIA [None]
